FAERS Safety Report 6273848-9 (Version None)
Quarter: 2009Q3

REPORT INFORMATION
  Report Type: 
  Country: None (occurrence: None)
  Receive Date: 20090720
  Receipt Date: 20070601
  Transmission Date: 20100115
  Serious: Yes (Other)
  Sender: FDA-Public Use
  Company Number: US-ASTRAZENECA-2006UW23514

PATIENT
  Age: 15724 Day
  Sex: Male
  Weight: 99.8 kg

DRUGS (16)
  1. SEROQUEL [Suspect]
     Route: 048
     Dates: start: 20000101
  2. SEROQUEL [Suspect]
     Dosage: 200-300 MG
     Route: 048
     Dates: start: 20040121
  3. CAPTOPRIL [Concomitant]
     Dates: start: 20010503
  4. INDOCIN [Concomitant]
     Dosage: 25-50 MG
     Dates: start: 20010503
  5. ZYLOPRIM [Concomitant]
     Dates: start: 20010503
  6. TRAZODONE [Concomitant]
     Indication: SLEEP DISORDER
     Dates: start: 20010503
  7. TAGAMET [Concomitant]
     Dates: start: 20010503
  8. ZESTRIL [Concomitant]
     Indication: HYPERTENSION
     Dosage: 10-50 MG, EVERY MORNING
     Dates: start: 20010605
  9. DEPAKOTE [Concomitant]
     Indication: MOOD ALTERED
     Route: 048
     Dates: start: 20011225
  10. TRILEPTAL [Concomitant]
     Dates: start: 20040121
  11. REMERON [Concomitant]
     Route: 048
     Dates: start: 20040121
  12. HYDROCODONE [Concomitant]
     Dosage: 5/500 MG
     Dates: start: 20040203
  13. TRIAMTERENE [Concomitant]
     Dates: start: 20011225
  14. HYDROCHLOROTHIAZIDE [Concomitant]
     Dates: start: 20011225
  15. ZYPREXA [Concomitant]
     Dates: start: 20011225
  16. ACCUPRIL [Concomitant]
     Dates: start: 20011225

REACTIONS (4)
  - DIABETES MELLITUS [None]
  - DIABETIC NEUROPATHY [None]
  - PANCREATITIS [None]
  - TYPE 2 DIABETES MELLITUS [None]
